FAERS Safety Report 11693649 (Version 1)
Quarter: 2015Q4

REPORT INFORMATION
  Report Type: Spontaneous
  Country: JP (occurrence: JP)
  Receive Date: 20151103
  Receipt Date: 20151103
  Transmission Date: 20160304
  Serious: Yes (Other)
  Sender: FDA-Public Use
  Company Number: JP-SA-2015SA170567

PATIENT
  Sex: Female

DRUGS (4)
  1. LEUPRORELIN ACETATE [Suspect]
     Active Substance: LEUPROLIDE ACETATE
     Indication: ENDOMETRIAL STROMAL SARCOMA
     Dosage: RECEIVED 3.75 MG/BODY SURFACE AREA
     Route: 065
  2. DOCETAXEL. [Suspect]
     Active Substance: DOCETAXEL
     Indication: ENDOMETRIAL STROMAL SARCOMA
     Dosage: RECEIVED 60MG/BODY SURFACE AREA ON DAY 8 EVERY 3 WEEKS
     Route: 065
  3. MEDROXYPROGESTERONE ACETATE. [Concomitant]
     Active Substance: MEDROXYPROGESTERONE ACETATE
  4. GEMCITABINE [Suspect]
     Active Substance: GEMCITABINE\GEMCITABINE HYDROCHLORIDE
     Indication: ENDOMETRIAL STROMAL SARCOMA
     Dosage: RECEIVED 800MG/BODY SURFACE AREA ON DAY 1 AND 8 EVERY 3 WEEKS
     Route: 065

REACTIONS (5)
  - Dyspnoea [Unknown]
  - Shock [Unknown]
  - Thoracic haemorrhage [Unknown]
  - Neutropenia [Unknown]
  - Product use issue [Unknown]
